FAERS Safety Report 8115636-4 (Version None)
Quarter: 2012Q1

REPORT INFORMATION
  Report Type: 
  Country: None (occurrence: None)
  Receive Date: 20120206
  Receipt Date: 20120131
  Transmission Date: 20120608
  Serious: No
  Sender: FDA-Public Use
  Company Number: US-BAYER-2012-011053

PATIENT
  Age: 64 Year
  Sex: Male
  Weight: 90 kg

DRUGS (4)
  1. DILANTIN [Concomitant]
  2. NAPROXEN (ALEVE) [Suspect]
     Indication: BACK PAIN
     Dosage: 1 DF, BID
     Route: 048
     Dates: start: 20120112
  3. GLIPIZIDE [Concomitant]
  4. METFORMIN HCL [Concomitant]

REACTIONS (5)
  - MUSCLE TIGHTNESS [None]
  - NO ADVERSE EVENT [None]
  - CONSTIPATION [None]
  - PAIN [None]
  - BACK PAIN [None]
